FAERS Safety Report 7063763-5 (Version None)
Quarter: 2010Q4

REPORT INFORMATION
  Report Type: 
  Country: None (occurrence: None)
  Receive Date: 20101026
  Receipt Date: 20101018
  Transmission Date: 20110411
  Serious: No
  Sender: FDA-Public Use
  Company Number: US-ABBOTT-10P-163-0665372-00

PATIENT
  Sex: Female

DRUGS (14)
  1. LUPRON DEPOT [Suspect]
     Indication: PRODUCT USED FOR UNKNOWN INDICATION
  2. 1/2 GRAIN [Concomitant]
     Indication: PRODUCT USED FOR UNKNOWN INDICATION
  3. IVF HORMONES [Concomitant]
     Indication: PRODUCT USED FOR UNKNOWN INDICATION
  4. VITAMINS AND SUPPLEMENTS [Concomitant]
     Indication: PRODUCT USED FOR UNKNOWN INDICATION
  5. METACLEANSE [Concomitant]
     Indication: DETOXIFICATION
  6. TURSKA'S FORMULA [Concomitant]
     Indication: PRODUCT USED FOR UNKNOWN INDICATION
     Route: 060
  7. INDOLPLEX [Concomitant]
     Indication: PRODUCT USED FOR UNKNOWN INDICATION
     Dosage: 2 WITH BREAKFAST
  8. SAW PALMETTO [Concomitant]
     Indication: PRODUCT USED FOR UNKNOWN INDICATION
     Dosage: 2 IN THE MORNING AND AGAIN AT BEDTIME
  9. PRO OMEGA FISH OIL [Concomitant]
     Indication: PRODUCT USED FOR UNKNOWN INDICATION
     Dosage: 2 WITH BREAKFAST, 2 WITH DINNER
  10. VITAMIN B COMPLEX CAP [Concomitant]
     Indication: PRODUCT USED FOR UNKNOWN INDICATION
     Dosage: WITH BREAKFAST
  11. VITAMIN D3 [Concomitant]
     Indication: PRODUCT USED FOR UNKNOWN INDICATION
     Dosage: WITH DINNER
  12. WESTTHROID [Concomitant]
     Indication: THYROID DISORDER
  13. RAINBOW LIGHT PRENATAL VITAMIN [Concomitant]
     Indication: PREGNANCY
     Dosage: BEDTIME
  14. THE PILL [Concomitant]
     Indication: PRODUCT USED FOR UNKNOWN INDICATION

REACTIONS (9)
  - ALOPECIA [None]
  - BIOPSY [None]
  - FATIGUE [None]
  - HEADACHE [None]
  - HIRSUTISM [None]
  - SKIN DISORDER [None]
  - SLUGGISHNESS [None]
  - THYROID FUNCTION TEST NORMAL [None]
  - UNEVALUABLE EVENT [None]
